FAERS Safety Report 15329297 (Version 1)
Quarter: 2018Q4

REPORT INFORMATION
  Report Type: Spontaneous
  Country: US (occurrence: US)
  Receive Date: 20180829
  Receipt Date: 20180829
  Transmission Date: 20190204
  Serious: No
  Sender: FDA-Public Use
  Company Number: US-ACCORD-069474

PATIENT
  Age: 61 Year
  Sex: Female

DRUGS (1)
  1. EPTIFIBATIDE ACCORD [Suspect]
     Active Substance: EPTIFIBATIDE
     Indication: PRODUCT USED FOR UNKNOWN INDICATION
     Dosage: STRENGTH: 75MG/100ML VIAL
     Route: 042
     Dates: start: 20180629

REACTIONS (1)
  - Product dose omission [Unknown]
